FAERS Safety Report 4320975-9 (Version None)
Quarter: 2004Q1

REPORT INFORMATION
  Report Type: 
  Country: None (occurrence: None)
  Receive Date: 20040315
  Receipt Date: 20031211
  Transmission Date: 20041129
  Serious: Yes (Other)
  Sender: FDA-Public Use
  Company Number: PHEH2003US11371

PATIENT
  Age: 41 Year
  Sex: Female

DRUGS (1)
  1. TRILEPTAL [Suspect]
     Dosage: ORAL
     Route: 048
     Dates: start: 20031101

REACTIONS (1)
  - HYPONATRAEMIA [None]
